FAERS Safety Report 4639822-0 (Version None)
Quarter: 2005Q2

REPORT INFORMATION
  Report Type: 
  Country: None (occurrence: None)
  Receive Date: 20050415
  Receipt Date: 20050401
  Transmission Date: 20051028
  Serious: Yes (Hospitalization)
  Sender: FDA-Public Use
  Company Number: 2005-SW-00143SF

PATIENT
  Age: 59 Year
  Sex: Male

DRUGS (4)
  1. SIFROL TAB. 0.18 MG (PRAMIPEXOLE DIHYDROCHLORIDE) (TA) [Suspect]
     Indication: PARKINSON'S DISEASE
     Dosage: 0.27 MCG (0.18 MCG, 1/2 TABLET X 3)
     Route: 048
     Dates: start: 20050314, end: 20050318
  2. STALEVO (STALEVO) (NR) [Concomitant]
  3. PRIMASPAN (ACETYLSALICYLIC ACID) (NR) [Concomitant]
  4. TENOX (TEMAZEPAM) (NR) [Concomitant]

REACTIONS (3)
  - PLEURAL DISORDER [None]
  - PLEURISY [None]
  - PYREXIA [None]
